FAERS Safety Report 6527324-6 (Version None)
Quarter: 2010Q1

REPORT INFORMATION
  Report Type: 
  Country: None (occurrence: None)
  Receive Date: 20100104
  Receipt Date: 20100104
  Transmission Date: 20100710
  Serious: Yes (Hospitalization)
  Sender: FDA-Public Use
  Company Number: None

PATIENT
  Age: 78 Year
  Sex: Male
  Weight: 107.9561 kg

DRUGS (12)
  1. LUCENTIS [Suspect]
     Indication: DIABETIC RETINAL OEDEMA
     Dosage: 0.5MG PRN INTRAOCULAR
     Route: 031
     Dates: start: 20070827, end: 20091204
  2. FLOMAX [Concomitant]
  3. ALLOPURINOL [Concomitant]
  4. ACTOS [Concomitant]
  5. LEXEPRO [Concomitant]
  6. PRAVACHOL [Concomitant]
  7. XTRA STRENGHTH TYLENOL [Concomitant]
  8. ATENOLOL [Concomitant]
  9. FUROSEMIDE [Concomitant]
  10. ONE A DAY VITAMIN [Concomitant]
  11. AMILODIPINE/BENAZAPRIL [Concomitant]
  12. TRAVATAN [Concomitant]

REACTIONS (3)
  - CHOLELITHIASIS [None]
  - DIALYSIS [None]
  - RENAL FAILURE [None]
